FAERS Safety Report 8105185-1 (Version None)
Quarter: 2012Q1

REPORT INFORMATION
  Report Type: 
  Country: None (occurrence: None)
  Receive Date: 20120201
  Receipt Date: 20120124
  Transmission Date: 20120608
  Serious: Yes (Hospitalization, Other)
  Sender: FDA-Public Use
  Company Number: CA-ABBOTT-12P-028-0897621-00

PATIENT
  Sex: Male
  Weight: 94.432 kg

DRUGS (1)
  1. LUPRON DEPOT [Suspect]
     Indication: PROSTATE CANCER
     Dates: start: 20060520, end: 20110927

REACTIONS (4)
  - BONE NEOPLASM MALIGNANT [None]
  - PATHOLOGICAL FRACTURE [None]
  - HIP FRACTURE [None]
  - FALL [None]
